FAERS Safety Report 4906374-7 (Version None)
Quarter: 2006Q1

REPORT INFORMATION
  Report Type: 
  Country: None (occurrence: None)
  Receive Date: 20060206
  Receipt Date: 20060123
  Transmission Date: 20060701
  Serious: Yes (Death, Hospitalization)
  Sender: FDA-Public Use
  Company Number: 2005BI017639

PATIENT
  Age: 41 Year
  Sex: Male
  Weight: 44.4525 kg

DRUGS (8)
  1. AVONEX LIQUID [Suspect]
     Indication: MULTIPLE SCLEROSIS
     Dosage: 30 UG; QW; IM
     Route: 030
     Dates: end: 20040925
  2. BACLOFEN [Concomitant]
  3. OXYBUTININ [Concomitant]
  4. PROZAC [Concomitant]
  5. NEURONTIN [Concomitant]
  6. ALEVE [Concomitant]
  7. ZONEGRAN [Concomitant]
  8. NOVANTRONE [Concomitant]

REACTIONS (4)
  - ACUTE MYELOID LEUKAEMIA [None]
  - BLAST CRISIS IN MYELOGENOUS LEUKAEMIA [None]
  - CHEST PAIN [None]
  - PNEUMONIA [None]
